FAERS Safety Report 4754853-8 (Version None)
Quarter: 2005Q3

REPORT INFORMATION
  Report Type: 
  Country: None (occurrence: None)
  Receive Date: 20050829
  Receipt Date: 20050617
  Transmission Date: 20060218
  Serious: Yes (Hospitalization, Other)
  Sender: FDA-Public Use
  Company Number: BE-ABBOTT-05P-013-0303722-00

PATIENT
  Sex: Male
  Weight: 69 kg

DRUGS (32)
  1. ZEMPLAR [Suspect]
     Indication: HYPERPARATHYROIDISM
     Dosage: NOT REPORTED
     Route: 042
     Dates: start: 20050530
  2. CALCIUM CARBONATE [Concomitant]
     Indication: BLOOD PHOSPHORUS INCREASED
     Dates: start: 20040730, end: 20050706
  3. CALCIUM CARBONATE [Concomitant]
     Dates: start: 20050706
  4. CALCIUM CARBONATE [Concomitant]
     Dates: start: 20050601
  5. NADROPARIN [Concomitant]
     Indication: ANTICOAGULANT THERAPY
     Dates: start: 20050506, end: 20050706
  6. NITROGLYCERIN [Concomitant]
     Indication: DRUG USE FOR UNKNOWN INDICATION
     Dates: start: 20050603, end: 20050706
  7. NATRIUMBICARBONAT [Concomitant]
     Indication: DRUG USE FOR UNKNOWN INDICATION
     Dates: start: 20050604, end: 20050706
  8. DOMPERIDON [Concomitant]
     Indication: GASTRIC DISORDER
     Dates: start: 20050608, end: 20050706
  9. DUOVENT [Concomitant]
     Indication: CHRONIC OBSTRUCTIVE PULMONARY DISEASE
     Dosage: PUFF, AS NECESSARY
     Dates: start: 20040513
  10. SEVELAMER [Concomitant]
     Indication: BLOOD PHOSPHORUS INCREASED
     Dates: start: 20040730
  11. METOPROLOL [Concomitant]
     Indication: HYPERTENSION
     Dates: start: 20041029
  12. SERIGOLE DISKUS [Concomitant]
     Indication: CHRONIC OBSTRUCTIVE PULMONARY DISEASE
     Dosage: 50/500, 2X1 PUFF
     Dates: start: 20041030
  13. LOSARTAN POTASSIUM [Concomitant]
     Indication: HYPERTENSION
     Dates: start: 20041116
  14. CETIRIZINE HCL [Concomitant]
     Indication: PRURITUS
     Dates: start: 20050112
  15. ZOLPIDEM HEMI-TARTRAT [Concomitant]
     Indication: SLEEP DISORDER
     Dates: start: 20050115
  16. AMLODIPINE [Concomitant]
     Indication: HYPERTENSION
     Dates: start: 20050129
  17. OMEPRAZOLE [Concomitant]
     Indication: GASTRIC DISORDER
     Dates: start: 20050610
  18. OMEPRAZOLE [Concomitant]
     Dosage: CO/D
     Dates: start: 20050601
  19. PARACETAMOL CODEINE FOSFOAT [Concomitant]
     Indication: PYREXIA
     Dosage: NOT REPORTED
     Dates: start: 20050601, end: 20050603
  20. CEFEPIMDIHYDRO-CHLORIDEMONOHYDROAT [Concomitant]
     Indication: ANTIBIOTIC PROPHYLAXIS
     Dosage: AFTER DIALYSIS
     Dates: start: 20050606, end: 20050606
  21. CIPROFLOXACIN [Concomitant]
     Indication: URINARY TRACT INFECTION
     Dosage: AFTER DIALYSIS
     Route: 042
     Dates: start: 20050612, end: 20050617
  22. CIPROFLOXACIN [Concomitant]
     Dates: start: 20050612, end: 20050626
  23. TEICOPLANIN [Concomitant]
     Indication: ANTIBIOTIC PROPHYLAXIS
     Dosage: AFTER DIALYSIS
     Dates: start: 20050606, end: 20050606
  24. PARACETAMOL [Concomitant]
     Indication: PYREXIA
     Route: 042
     Dates: start: 20050612, end: 20050612
  25. EPOGEN [Concomitant]
     Indication: ANAEMIA
     Dates: start: 20050629
  26. ASPIRIN [Concomitant]
     Indication: DRUG USE FOR UNKNOWN INDICATION
     Dosage: CO PER DAY
     Dates: start: 20050601
  27. METOPROLOL TARTRATE [Concomitant]
     Indication: DRUG USE FOR UNKNOWN INDICATION
     Dosage: 2 X 1 CO PER DAY
     Dates: start: 20050601
  28. LOSARTAN POTASSIUM [Concomitant]
     Indication: DRUG USE FOR UNKNOWN INDICATION
     Dosage: 1 X 1/2 CO PER DAY
     Dates: start: 20050601
  29. CLOPIDOGREL BISULFATE [Concomitant]
     Indication: DRUG USE FOR UNKNOWN INDICATION
     Dosage: CO PER DAY
     Dates: start: 20050601
  30. AMLODIPINE BESILATE [Concomitant]
     Indication: DRUG USE FOR UNKNOWN INDICATION
     Dates: start: 20050601
  31. ZOLPIDEM TARTRATE [Concomitant]
     Indication: DRUG USE FOR UNKNOWN INDICATION
     Dosage: CO PER DAY
     Dates: start: 20050601
  32. GLYCERYL TRINITRATE [Concomitant]
     Indication: DRUG USE FOR UNKNOWN INDICATION
     Dosage: 10 MG PATCH
     Dates: start: 20050601

REACTIONS (11)
  - ABDOMINAL DISCOMFORT [None]
  - ANOREXIA [None]
  - COLITIS ISCHAEMIC [None]
  - DYSPNOEA [None]
  - GASTROENTERITIS [None]
  - INFREQUENT BOWEL MOVEMENTS [None]
  - MALAISE [None]
  - SEPSIS [None]
  - URINARY TRACT INFECTION [None]
  - URINE OUTPUT DECREASED [None]
  - WHITE BLOOD CELL COUNT INCREASED [None]
